FAERS Safety Report 11171462 (Version 3)
Quarter: 2017Q2

REPORT INFORMATION
  Report Type: Spontaneous
  Country: US (occurrence: US)
  Receive Date: 20150608
  Receipt Date: 20170420
  Transmission Date: 20170829
  Serious: No
  Sender: FDA-Public Use
  Company Number: US-PFIZER INC-2015188340

PATIENT
  Age: 39 Year
  Sex: Female

DRUGS (12)
  1. GEODON [Concomitant]
     Active Substance: ZIPRASIDONE HYDROCHLORIDE\ZIPRASIDONE MESYLATE
     Dosage: 20 MG, 1X/DAY (TAKE 1 CAPSULE(S) BY MOUTH 1 TIME A DAY WITH FOOD)
     Route: 048
     Dates: start: 20161102
  2. NOVOLOG [Concomitant]
     Active Substance: INSULIN ASPART
     Dosage: 20 IU, 3X/DAY (INJECT 20 UNITS SUBCUTANEOUSLY 3 TIMES A DAY WITH MEALS)
     Route: 058
     Dates: start: 20161027
  3. BREO ELLIPTA [Concomitant]
     Active Substance: FLUTICASONE FUROATE\VILANTEROL TRIFENATATE
     Dosage: UNK ([FLUTICASONE FUROATE100MCG/INH]/[VILANTEROL TRIFENATATE25MCG/INH] 1PUFF(S) EVERY 24 HOURS)
     Route: 055
     Dates: start: 20161027
  4. BENICAR HCT [Concomitant]
     Active Substance: HYDROCHLOROTHIAZIDE\OLMESARTAN MEDOXOMIL
     Dosage: 1 DF, 1X/DAY [HYDROCHLOROTHIAZIDE 25 MG]/[OLMESARTAN MEDOXOMIL 40 MG]
     Route: 048
     Dates: start: 20160623
  5. LYRICA [Suspect]
     Active Substance: PREGABALIN
     Indication: PAIN
     Dosage: 75 MG, 2X/DAY(1 PO BID)
     Route: 048
  6. LEVEMIR [Concomitant]
     Active Substance: INSULIN DETEMIR
     Dosage: 65 IU, DAILY (SUBCUTANEOUSLY 35 UNITS AM + 30 UNITS PM)
     Route: 058
     Dates: start: 20161027
  7. GABAPENTIN. [Concomitant]
     Active Substance: GABAPENTIN
     Dosage: 300 MG, 3X/DAY
     Route: 048
     Dates: start: 20161027
  8. LAMOTRIGINE. [Concomitant]
     Active Substance: LAMOTRIGINE
     Dosage: 100 MG, 2X/DAY
     Route: 048
     Dates: start: 20161102
  9. NOVOLOG [Concomitant]
     Active Substance: INSULIN ASPART
     Dosage: 15 IU, 3X/DAY (INJECT 15 UNITS SUBCUTANEOUSLY 3 TIMES A DAY WITH MEALS)
     Route: 058
     Dates: start: 20160623
  10. VISTARIL [Concomitant]
     Active Substance: HYDROXYZINE PAMOATE
     Indication: ANXIETY
     Dosage: 50 MG, AS NEEDED (1 CAPSULE(S) 2 TIMES A DAY )
     Route: 048
     Dates: start: 20161102
  11. METFORMIN [Concomitant]
     Active Substance: METFORMIN HYDROCHLORIDE
     Dosage: 1000 MG, UNK (TAKE 1 TABLET(S) BY MOUTH EVERY 12 HOURS)
     Route: 048
     Dates: start: 20160818
  12. MELATONIN [Concomitant]
     Active Substance: MELATONIN
     Indication: SLEEP DISORDER
     Dosage: 3 MG, 1X/DAY (TAKE 1 CAPSULE(S) BY MOUTH 1 TIME A DAY AT BEDTIME FOR SLEEP)
     Route: 048
     Dates: start: 20161102

REACTIONS (1)
  - Drug ineffective [Unknown]
